FAERS Safety Report 9201280 (Version 1)
Quarter: 2013Q2

REPORT INFORMATION
  Report Type: Spontaneous
  Country: NL (occurrence: NL)
  Receive Date: 20130401
  Receipt Date: 20130401
  Transmission Date: 20140414
  Serious: Yes (Other)
  Sender: FDA-Public Use
  Company Number: PHHY2013NL031074

PATIENT
  Sex: Male

DRUGS (3)
  1. ZOMETA [Suspect]
     Indication: METASTASIS
     Dosage: ONCE PER 28 DAYS
     Route: 042
  2. ZOMETA [Suspect]
     Dosage: ONCE PER 28 DAYS
     Route: 042
     Dates: start: 20130117
  3. ZOMETA [Suspect]
     Dosage: ONCE PER 28 DAYS
     Route: 042
     Dates: start: 20130319

REACTIONS (1)
  - Terminal state [Unknown]
